FAERS Safety Report 12676829 (Version 3)
Quarter: 2017Q3

REPORT INFORMATION
  Report Type: Report from Study
  Country: None (occurrence: CA)
  Receive Date: 20160823
  Receipt Date: 20170821
  Transmission Date: 20171127
  Serious: Yes (Other)
  Sender: FDA-Public Use
  Company Number: CA-ABBVIE-16P-028-1707082-00

PATIENT
  Sex: Female

DRUGS (4)
  1. CLONAZEPAM. [Suspect]
     Active Substance: CLONAZEPAM
     Indication: PRODUCT USED FOR UNKNOWN INDICATION
     Route: 065
  2. PAXIL [Suspect]
     Active Substance: PAROXETINE HYDROCHLORIDE
     Indication: PRODUCT USED FOR UNKNOWN INDICATION
     Route: 065
  3. NAPROXEN. [Suspect]
     Active Substance: NAPROXEN
     Indication: PRODUCT USED FOR UNKNOWN INDICATION
     Route: 065
  4. LUPRON DEPOT [Suspect]
     Active Substance: LEUPROLIDE ACETATE
     Indication: MENORRHAGIA
     Route: 030
     Dates: start: 20160606, end: 20160606

REACTIONS (16)
  - Hot flush [Not Recovered/Not Resolved]
  - Muscle spasms [Recovering/Resolving]
  - Amnesia [Recovering/Resolving]
  - Fatigue [Recovering/Resolving]
  - Nervousness [Recovering/Resolving]
  - Vision blurred [Recovering/Resolving]
  - Depression [Recovering/Resolving]
  - Hyperhidrosis [Recovering/Resolving]
  - Suicide attempt [Unknown]
  - Constipation [Recovering/Resolving]
  - Anger [Recovering/Resolving]
  - Insomnia [Recovering/Resolving]
  - Depressed mood [Recovering/Resolving]
  - Loss of personal independence in daily activities [Recovering/Resolving]
  - Nausea [Recovering/Resolving]
  - Feeling abnormal [Recovering/Resolving]

NARRATIVE: CASE EVENT DATE: 2016
